FAERS Safety Report 9223051 (Version 1)
Quarter: 2013Q2

REPORT INFORMATION
  Report Type: Spontaneous
  Country: GR (occurrence: GR)
  Receive Date: 20130410
  Receipt Date: 20130410
  Transmission Date: 20140414
  Serious: Yes (Other)
  Sender: FDA-Public Use
  Company Number: GR-ROCHE-1211633

PATIENT
  Age: 60 Year
  Sex: Female
  Weight: 90 kg

DRUGS (2)
  1. XENICAL [Suspect]
     Indication: CONSTIPATION
     Dosage: 1-2 TABS
     Route: 065
  2. XENICAL [Suspect]
     Indication: OFF LABEL USE

REACTIONS (1)
  - Anaemia [Not Recovered/Not Resolved]
